FAERS Safety Report 19189305 (Version 1)
Quarter: 2021Q2

REPORT INFORMATION
  Report Type: Spontaneous
  Country: US (occurrence: US)
  Receive Date: 20210428
  Receipt Date: 20210428
  Transmission Date: 20210717
  Serious: No
  Sender: FDA-Public Use
  Company Number: None

PATIENT
  Age: 61 Year
  Sex: Male

DRUGS (5)
  1. BUPIVACAINE 0.5% [Concomitant]
     Active Substance: BUPIVACAINE
     Dates: start: 20210414, end: 20210414
  2. BUPIVACAINE. [Suspect]
     Active Substance: BUPIVACAINE
     Indication: ANAESTHESIA EYE
     Dates: start: 20210414, end: 20210414
  3. HYALURONIDASE [Concomitant]
     Active Substance: HYALURONIDASE
     Dates: start: 20210414, end: 20210414
  4. LIDOCAINE. [Suspect]
     Active Substance: LIDOCAINE
     Indication: ANAESTHESIA EYE
     Dates: start: 20210414, end: 20210414
  5. LIDOCAINE 2% [Concomitant]
     Active Substance: LIDOCAINE
     Dates: start: 20210414, end: 20210414

REACTIONS (4)
  - Intraocular pressure increased [None]
  - Eyelid disorder [None]
  - Ecchymosis [None]
  - Periorbital haematoma [None]

NARRATIVE: CASE EVENT DATE: 20210414
